FAERS Safety Report 4511742-1 (Version None)
Quarter: 2004Q4

REPORT INFORMATION
  Report Type: 
  Country: None (occurrence: None)
  Receive Date: 20041123
  Receipt Date: 20041123
  Transmission Date: 20050328
  Serious: Yes (Hospitalization)
  Sender: FDA-Public Use
  Company Number: None

PATIENT
  Age: 41 Year
  Sex: Female
  Weight: 89.4 kg

DRUGS (2)
  1. FOSINOPRIL SODIUM [Suspect]
     Indication: DIABETES MELLITUS
     Dosage: 10MG, DAILY, ORAL
     Route: 048
     Dates: start: 20040920, end: 20040929
  2. GLIPIZIDE [Suspect]
     Indication: DIABETES MELLITUS
     Dosage: 5MG, DAILY, ORAL
     Route: 048
     Dates: start: 20040914, end: 20041001

REACTIONS (1)
  - RASH [None]
